FAERS Safety Report 5092068-7 (Version None)
Quarter: 2006Q3

REPORT INFORMATION
  Report Type: 
  Country: None (occurrence: None)
  Receive Date: 20060825
  Receipt Date: 20060810
  Transmission Date: 20061208
  Serious: Yes (Hospitalization, Other)
  Sender: FDA-Public Use
  Company Number: PAR_0721_2006

PATIENT
  Age: 20 Year
  Sex: Male

DRUGS (5)
  1. IBUPROFEN [Suspect]
     Indication: INTENTIONAL OVERDOSE
     Dosage: 12 TAB ONCE PO
     Route: 048
  2. PARACETAMOL [Suspect]
     Indication: INTENTIONAL OVERDOSE
     Dosage: 26 TAB ONCE PO
     Route: 048
  3. DIHYDROCHLORIDE NOS [Suspect]
     Indication: INTENTIONAL OVERDOSE
     Dosage: 8 TAB ONCE PO
     Route: 048
  4. METHYLPHENIDATE HCL [Suspect]
     Indication: INTENTIONAL OVERDOSE
     Dosage: 28 TAB ONCE PO
     Route: 048
  5. ALCOHOL DRINKS [Suspect]
     Indication: INTENTIONAL OVERDOSE
     Dosage: 8 U ONCE PO
     Route: 048

REACTIONS (3)
  - DYSARTHRIA [None]
  - MULTIPLE DRUG OVERDOSE INTENTIONAL [None]
  - REFUSAL OF TREATMENT BY PATIENT [None]
